FAERS Safety Report 6201715-5 (Version None)
Quarter: 2009Q2

REPORT INFORMATION
  Report Type: 
  Country: None (occurrence: None)
  Receive Date: 20090526
  Receipt Date: 20090514
  Transmission Date: 20091009
  Serious: Yes (Other)
  Sender: FDA-Public Use
  Company Number: HR-BAYER-200921295GPV

PATIENT
  Age: 31 Year
  Sex: Female

DRUGS (1)
  1. YASMIN [Suspect]
     Indication: MENORRHAGIA
     Route: 048
     Dates: start: 20060601, end: 20090407

REACTIONS (6)
  - BALANCE DISORDER [None]
  - NAUSEA [None]
  - THYROXINE INCREASED [None]
  - VERTIGO LABYRINTHINE [None]
  - VESTIBULAR DISORDER [None]
  - VISUAL IMPAIRMENT [None]
